FAERS Safety Report 11359341 (Version 1)
Quarter: 2015Q3

REPORT INFORMATION
  Report Type: Spontaneous
  Country: US (occurrence: US)
  Receive Date: 20150807
  Receipt Date: 20150807
  Transmission Date: 20151125
  Serious: Yes (Other)
  Sender: FDA-Public Use
  Company Number: US-COREPHARMA LLC-2015COR00158

PATIENT
  Age: 93 Year
  Sex: Female

DRUGS (15)
  1. METRONIDAZOLE. [Concomitant]
     Active Substance: METRONIDAZOLE
  2. PROMETHAZINE [Concomitant]
     Active Substance: PROMETHAZINE\PROMETHAZINE HYDROCHLORIDE
  3. METOPROLOL [Suspect]
     Active Substance: METOPROLOL
  4. TRAMADOL. [Concomitant]
     Active Substance: TRAMADOL
  5. TIZANIDINE HYDROCHLORIDE. [Suspect]
     Active Substance: TIZANIDINE HYDROCHLORIDE
     Indication: BACK PAIN
     Dosage: 4 MG, ONCE
     Route: 048
  6. SIMVASTATIN. [Concomitant]
     Active Substance: SIMVASTATIN
  7. ALENDRONATE [Concomitant]
     Active Substance: ALENDRONATE SODIUM
  8. ACIDOPHILUS [Concomitant]
     Active Substance: LACTOBACILLUS ACIDOPHILUS
  9. TRIAMTERENE AND HYDROCHLOROTHIAZIDE [Concomitant]
     Active Substance: HYDROCHLOROTHIAZIDE\TRIAMTERENE
  10. LIDOCAINE. [Concomitant]
     Active Substance: LIDOCAINE
     Route: 061
  11. DILTIAZEM [Suspect]
     Active Substance: DILTIAZEM
  12. CHOLESTYRAMINE. [Concomitant]
     Active Substance: CHOLESTYRAMINE
  13. LEVOTHYROXINE. [Concomitant]
     Active Substance: LEVOTHYROXINE
  14. LUBIPROSTONE [Concomitant]
     Active Substance: LUBIPROSTONE
  15. WARFARIN [Concomitant]
     Active Substance: WARFARIN

REACTIONS (4)
  - Hypotension [Recovered/Resolved]
  - Encephalopathy [Recovered/Resolved]
  - Cardiac pacemaker insertion [Not Recovered/Not Resolved]
  - Bradycardia [Recovered/Resolved]
